FAERS Safety Report 26109272 (Version 1)
Quarter: 2025Q4

REPORT INFORMATION
  Report Type: Report from Study
  Country: US (occurrence: US)
  Receive Date: 20251201
  Receipt Date: 20251201
  Transmission Date: 20260117
  Serious: Yes (Other)
  Sender: MALLINCKRODT
  Company Number: US-MALLINCKRODT-MNK202507345

PATIENT
  Age: 53 Year
  Sex: Female

DRUGS (2)
  1. CORTICOTROPIN [Suspect]
     Active Substance: CORTICOTROPIN
     Indication: Multiple sclerosis
     Dosage: UNKNOWN
  2. OXAZEPAM [Suspect]
     Active Substance: OXAZEPAM
     Indication: Multiple sclerosis
     Dosage: UNKNOWN

REACTIONS (13)
  - Multiple sclerosis relapse [Not Recovered/Not Resolved]
  - Parkinson^s disease [Unknown]
  - Nausea [Unknown]
  - Sensitivity to weather change [Unknown]
  - Feeling abnormal [Recovering/Resolving]
  - Confusional state [Unknown]
  - Sinus disorder [Unknown]
  - Visual impairment [Not Recovered/Not Resolved]
  - Thyroid disorder [Unknown]
  - Onychomycosis [Unknown]
  - Fluid retention [Unknown]
  - Headache [Not Recovered/Not Resolved]
  - Insomnia [Unknown]

NARRATIVE: CASE EVENT DATE: 20251117
